FAERS Safety Report 9467750 (Version 2)
Quarter: 2013Q4

REPORT INFORMATION
  Report Type: Spontaneous
  Country: FR (occurrence: FR)
  Receive Date: 20130821
  Receipt Date: 20131004
  Transmission Date: 20140711
  Serious: Yes (Hospitalization)
  Sender: FDA-Public Use
  Company Number: FR-ASTELLAS-2013EU007070

PATIENT
  Age: 74 Year
  Sex: Male

DRUGS (7)
  1. ADVAGRAF [Suspect]
     Indication: PROPHYLAXIS AGAINST TRANSPLANT REJECTION
     Dosage: 1 MG, UID/QD
     Route: 048
  2. ADVAGRAF [Suspect]
     Dosage: 1 MG, BID
     Route: 048
     Dates: start: 20130809
  3. ADVAGRAF [Suspect]
     Dosage: 1 MG, UID/QD
     Route: 048
     Dates: start: 20130810
  4. ADVAGRAF [Suspect]
     Dosage: 1 MG, UID/QD
     Route: 048
     Dates: start: 20130812
  5. ADVAGRAF [Suspect]
     Dosage: 2 MG, UID/QD
     Route: 048
     Dates: start: 20130825
  6. MODIGRAF [Suspect]
     Indication: PROPHYLAXIS AGAINST TRANSPLANT REJECTION
     Dosage: 1 MG, BID
     Route: 065
  7. MODIGRAF [Suspect]
     Dosage: 1.5 MG, OTHER
     Route: 065
     Dates: start: 20130820

REACTIONS (3)
  - Intentional drug misuse [Unknown]
  - Aortic stenosis [Unknown]
  - Immunosuppressant drug level decreased [Not Recovered/Not Resolved]
